FAERS Safety Report 6921544-4 (Version None)
Quarter: 2010Q3

REPORT INFORMATION
  Report Type: 
  Country: None (occurrence: None)
  Receive Date: 20100812
  Receipt Date: 20100803
  Transmission Date: 20110219
  Serious: Yes (Hospitalization)
  Sender: FDA-Public Use
  Company Number: PHHO2010BR11871

PATIENT
  Weight: 101 kg

DRUGS (11)
  1. BLINDED ALISKIREN ALI+TAB+CF [Suspect]
     Dosage: CODE NOT BROKEN
     Route: 048
     Dates: start: 20100521, end: 20100705
  2. BLINDED ENALAPRIL COMP-ENA+ [Suspect]
     Dosage: CODE NOT BROKEN
     Route: 048
     Dates: start: 20100521, end: 20100705
  3. BLINDED NO TREATMENT RECEIVED NOMED [Suspect]
     Dosage: CODE NOT BROKEN
     Route: 048
     Dates: start: 20100521, end: 20100705
  4. ALISKIREN [Suspect]
     Indication: CARDIAC FAILURE
  5. COMPARATOR ENALAPRIL [Suspect]
     Indication: CARDIAC FAILURE
     Dosage: 20 MG, UNK
     Route: 048
  6. FUROSEMIDE [Concomitant]
     Indication: CARDIAC FAILURE
  7. ASPIRIN [Concomitant]
     Indication: CORONARY ARTERY DISEASE
     Dosage: UNK
  8. LEVOTHYROXINE [Concomitant]
     Indication: HYPOTHYROIDISM
  9. AMIODARONE HCL [Concomitant]
     Indication: ARRHYTHMIA
  10. CARVEDILOL [Concomitant]
     Indication: CARDIAC FAILURE
  11. SPIRONOLACTONE [Concomitant]
     Indication: CARDIAC FAILURE

REACTIONS (2)
  - CARDIAC FAILURE [None]
  - DISEASE PROGRESSION [None]
